FAERS Safety Report 5943977-5 (Version None)
Quarter: 2008Q4

REPORT INFORMATION
  Report Type: 
  Country: None (occurrence: None)
  Receive Date: 20081021
  Receipt Date: 20070907
  Transmission Date: 20090506
  Serious: Yes (Other)
  Sender: FDA-Public Use
  Company Number: HQWYE224331AUG05

PATIENT
  Age: 63 Year
  Sex: Female
  Weight: 72.64 kg

DRUGS (4)
  1. PREMARIN [Suspect]
  2. NORETHINDRONE ACETATE [Suspect]
  3. OGEN [Suspect]
  4. PROVERA [Suspect]

REACTIONS (1)
  - BREAST CANCER [None]
